FAERS Safety Report 5932115-0 (Version None)
Quarter: 2008Q4

REPORT INFORMATION
  Report Type: 
  Country: None (occurrence: None)
  Receive Date: 20081027
  Receipt Date: 20081027
  Transmission Date: 20090506
  Serious: Yes (Other)
  Sender: FDA-Public Use
  Company Number: None

PATIENT
  Age: 50 Year
  Sex: Male
  Weight: 104.3273 kg

DRUGS (1)
  1. VERAPAMIL EXTENDED-RELEASE [Suspect]
     Indication: BIPOLAR DISORDER
     Dosage: 240MG PO2QD
     Route: 048

REACTIONS (5)
  - AFFECTIVE DISORDER [None]
  - ANXIETY [None]
  - OBSESSIVE-COMPULSIVE DISORDER [None]
  - PANIC ATTACK [None]
  - PRODUCT QUALITY ISSUE [None]
